FAERS Safety Report 23242206 (Version 1)
Quarter: 2023Q4

REPORT INFORMATION
  Report Type: Spontaneous
  Country: BE (occurrence: BE)
  Receive Date: 20231129
  Receipt Date: 20231129
  Transmission Date: 20240110
  Serious: Yes (Disabling)
  Sender: FDA-Public Use
  Company Number: None

PATIENT
  Age: 31 Year
  Sex: Male
  Weight: 130 kg

DRUGS (2)
  1. AMLODIPINE BESYLATE [Interacting]
     Active Substance: AMLODIPINE BESYLATE
     Indication: Product used for unknown indication
     Dosage: UNK
     Route: 065
  2. PALIPERIDONE PALMITATE [Interacting]
     Active Substance: PALIPERIDONE PALMITATE
     Indication: Antipsychotic therapy
     Dosage: 1 DOSAGE FORM, Q28D
     Route: 030

REACTIONS (2)
  - Hypertension [Recovering/Resolving]
  - Drug interaction [Unknown]
